FAERS Safety Report 17201176 (Version 2)
Quarter: 2020Q3

REPORT INFORMATION
  Report Type: Report from Study
  Country: AU (occurrence: AU)
  Receive Date: 20191226
  Receipt Date: 20200211
  Transmission Date: 20201104
  Serious: No
  Sender: FDA-Public Use
  Company Number: AU-ASTELLAS-2019US050408

PATIENT
  Age: 76 Year
  Sex: Male

DRUGS (2)
  1. TALAZOPARIB. [Suspect]
     Active Substance: TALAZOPARIB
     Indication: HORMONE-REFRACTORY PROSTATE CANCER
     Dosage: 0.5 MG, ONCE DAILY
     Route: 065
  2. ENZALUTAMIDE [Suspect]
     Active Substance: ENZALUTAMIDE
     Indication: HORMONE-REFRACTORY PROSTATE CANCER
     Route: 065
     Dates: start: 20190923

REACTIONS (2)
  - Cognitive disorder [Unknown]
  - Abulia [Unknown]
